FAERS Safety Report 20309086 (Version 4)
Quarter: 2022Q2

REPORT INFORMATION
  Report Type: Other
  Country: US (occurrence: None)
  Receive Date: 20220107
  Receipt Date: 20220617
  Transmission Date: 20220721
  Serious: Yes (Hospitalization)
  Sender: FDA-Public Use
  Company Number: US-ROCHE-2993756

PATIENT
  Age: 58 Year
  Sex: Female
  Weight: 88.530 kg

DRUGS (5)
  1. OCREVUS [Suspect]
     Active Substance: OCRELIZUMAB
     Indication: Multiple sclerosis
     Dosage: DATE OF TREATMENT: 15/APR/2019, 31/OCT/2019, 20/MAY/2020, 18/NOV.2020, 17/MAY/2021, 10/OCT/2021?INFU
     Route: 042
     Dates: start: 20190415
  2. OCREVUS [Suspect]
     Active Substance: OCRELIZUMAB
     Indication: Secondary progressive multiple sclerosis
     Route: 042
  3. OCREVUS [Suspect]
     Active Substance: OCRELIZUMAB
     Route: 042
     Dates: start: 2018
  4. GLIPIZIDE [Concomitant]
     Active Substance: GLIPIZIDE
     Dosage: 1 IN THE MORNING AND 1 AT NIGHT
     Route: 048
  5. FAMOTIDINE [Concomitant]
     Active Substance: FAMOTIDINE
     Indication: Gastrooesophageal reflux disease
     Dosage: 1 IN THE MORNING AND 1 AT NIGHT
     Route: 048

REACTIONS (3)
  - COVID-19 pneumonia [Recovered/Resolved]
  - Phantom limb syndrome [Not Recovered/Not Resolved]
  - Gait disturbance [Not Recovered/Not Resolved]

NARRATIVE: CASE EVENT DATE: 20211201
